FAERS Safety Report 17747505 (Version 2)
Quarter: 2021Q1

REPORT INFORMATION
  Report Type: Report from Study
  Country: SE (occurrence: SE)
  Receive Date: 20200505
  Receipt Date: 20210125
  Transmission Date: 20210419
  Serious: Yes (Life-Threatening)
  Sender: FDA-Public Use
  Company Number: SE-SA-2019SA302810

PATIENT
  Age: 9 Year
  Sex: Male
  Weight: 36 kg

DRUGS (18)
  1. HYDROCORTISONE SODIUM [Concomitant]
     Active Substance: HYDROCORTISONE SODIUM SUCCINATE
     Dosage: 100 MG, 1X,  AT 11:00
     Route: 042
     Dates: start: 20191030, end: 20191030
  2. ACETAMINOPHEN. [Concomitant]
     Active Substance: ACETAMINOPHEN
     Indication: PROPHYLAXIS
     Dosage: 528 MG, 1X, BETWEEN 9.40 AND 10.00 AM
     Route: 048
     Dates: start: 20191030, end: 20191030
  3. CYTARABINE. [Suspect]
     Active Substance: CYTARABINE
     Indication: T-CELL TYPE ACUTE LEUKAEMIA
     Dosage: 2 MG/M2
     Route: 042
  4. METHOTREXATE. [Suspect]
     Active Substance: METHOTREXATE
     Indication: T-CELL TYPE ACUTE LEUKAEMIA
     Dosage: 1000 MG/M2
     Route: 042
  5. ASPARAGINASE [Suspect]
     Active Substance: ASPARAGINASE
     Indication: T-CELL TYPE ACUTE LEUKAEMIA
     Dosage: 1000 IU/M2
     Route: 030
  6. ADRENALINE [EPINEPHRINE] [Concomitant]
     Active Substance: EPINEPHRINE
     Dosage: 0.3 MG, 1X, AT 10.55
     Route: 042
     Dates: start: 20191030, end: 20191030
  7. DEXAMETHASONE. [Suspect]
     Active Substance: DEXAMETHASONE
     Indication: T-CELL TYPE ACUTE LEUKAEMIA
     Dosage: 12 MG/M2, QD
     Route: 048
     Dates: start: 20191028, end: 20191030
  8. CLONIDINE. [Concomitant]
     Active Substance: CLONIDINE
     Indication: PROPHYLAXIS
     Dosage: UNK
     Route: 048
     Dates: start: 20191009, end: 20191028
  9. VINCRISTINE SULFATE. [Suspect]
     Active Substance: VINCRISTINE SULFATE
     Indication: T-CELL TYPE ACUTE LEUKAEMIA
     Dosage: 1.5 MG/M2
     Route: 042
  10. FLUCONAZOLE. [Concomitant]
     Active Substance: FLUCONAZOLE
     Indication: PROPHYLAXIS
     Dosage: UNK
     Route: 048
     Dates: start: 20190528
  11. ISATUXIMAB [Suspect]
     Active Substance: ISATUXIMAB
     Indication: T-CELL TYPE ACUTE LEUKAEMIA
     Dosage: 20 MG/KG, QW  (INTERRUPTION OF AT 10.50)
     Route: 042
     Dates: start: 20191030, end: 20191030
  12. ISATUXIMAB [Suspect]
     Active Substance: ISATUXIMAB
     Dosage: 20 MG/KG, QW  (FROM 10:20 TO 10:42)
     Route: 042
     Dates: start: 20191030, end: 20191030
  13. MITOXANTRONE [Suspect]
     Active Substance: MITOXANTRONE HYDROCHLORIDE
     Indication: T-CELL TYPE ACUTE LEUKAEMIA
     Dosage: 10 MG/M2
     Route: 042
  14. DOXORUBICIN [Suspect]
     Active Substance: DOXORUBICIN
     Indication: T-CELL TYPE ACUTE LEUKAEMIA
     Dosage: 25 MG/M2
     Route: 042
  15. FLUDARABINE [Suspect]
     Active Substance: FLUDARABINE PHOSPHATE
     Indication: T-CELL TYPE ACUTE LEUKAEMIA
     Dosage: UNK
     Route: 065
  16. CLINDAMYCIN. [Concomitant]
     Active Substance: CLINDAMYCIN
     Dosage: UNK
     Route: 042
     Dates: start: 20191018, end: 20191026
  17. CEFTAZIDIM [Concomitant]
     Active Substance: CEFTAZIDIME
     Dosage: UNK
     Route: 042
     Dates: start: 20191016, end: 20191026
  18. SULFAMETHOXAZOLE [Concomitant]
     Active Substance: SULFAMETHOXAZOLE
     Indication: PROPHYLAXIS
     Dosage: UNK
     Route: 048
     Dates: start: 20190907, end: 20191027

REACTIONS (1)
  - Anaphylactic reaction [Recovered/Resolved]

NARRATIVE: CASE EVENT DATE: 20191030
